FAERS Safety Report 11327808 (Version 1)
Quarter: 2015Q3

REPORT INFORMATION
  Report Type: Spontaneous
  Country: US (occurrence: US)
  Receive Date: 20150731
  Receipt Date: 20150731
  Transmission Date: 20151125
  Serious: Yes (Hospitalization)
  Sender: FDA-Public Use
  Company Number: 2015SP002508

PATIENT
  Age: 60 Year
  Sex: Female

DRUGS (2)
  1. LEVALBUTEROL MDI-HFA (TARTRATE) [Suspect]
     Active Substance: LEVALBUTEROL
     Route: 055
  2. THALOMID [Suspect]
     Active Substance: THALIDOMIDE
     Indication: PLASMA CELL MYELOMA
     Route: 048
     Dates: start: 20150617

REACTIONS (4)
  - Stomatitis [Unknown]
  - Nasopharyngitis [Unknown]
  - Nasal congestion [Unknown]
  - Cough [Unknown]

NARRATIVE: CASE EVENT DATE: 20150617
